FAERS Safety Report 4881628-1 (Version None)
Quarter: 2006Q1

REPORT INFORMATION
  Report Type: 
  Country: None (occurrence: None)
  Receive Date: 20060116
  Receipt Date: 20060106
  Transmission Date: 20060701
  Serious: Yes (Other)
  Sender: FDA-Public Use
  Company Number: PHEH2006US00652

PATIENT
  Age: 79 Year
  Sex: Male

DRUGS (5)
  1. MELPHALAN [Concomitant]
     Indication: MULTIPLE MYELOMA
     Dosage: 18 MG FOR 4 DAYS
     Dates: start: 20030414, end: 20040209
  2. PREDNISONE [Concomitant]
     Indication: MULTIPLE MYELOMA
     Dosage: 60 MG FOR 4 DAYS
     Dates: start: 20030414, end: 20040209
  3. THALIDOMIDE [Concomitant]
     Indication: MULTIPLE MYELOMA
     Dosage: 200 MG, QD
     Dates: start: 20040519, end: 20041108
  4. THALIDOMIDE [Concomitant]
     Dosage: 200 MG, QD
     Dates: start: 20051109
  5. ZOMETA [Suspect]
     Indication: MULTIPLE MYELOMA
     Dosage: 4 MG EVERY 4 WEEKS
     Dates: start: 20030117, end: 20051109

REACTIONS (5)
  - ANAEMIA OF MALIGNANT DISEASE [None]
  - BONE DISORDER [None]
  - INFLAMMATION [None]
  - OSTEONECROSIS [None]
  - TOOTH EXTRACTION [None]
